FAERS Safety Report 17765500 (Version 1)
Quarter: 2020Q2

REPORT INFORMATION
  Report Type: Spontaneous
  Country: US (occurrence: US)
  Receive Date: 20200509
  Receipt Date: 20200509
  Transmission Date: 20200714
  Serious: Yes (Death)
  Sender: FDA-Public Use
  Company Number: None

PATIENT
  Age: 23 Year
  Sex: Male
  Weight: 76.5 kg

DRUGS (1)
  1. THEOPHYLLINE [Suspect]
     Active Substance: THEOPHYLLINE ANHYDROUS
     Indication: ASTHMA

REACTIONS (8)
  - Hypersomnia [None]
  - Optic neuritis [None]
  - Fear [None]
  - Psychotic disorder [None]
  - Myelitis transverse [None]
  - Anxiety [None]
  - Clinically isolated syndrome [None]
  - Balance disorder [None]

NARRATIVE: CASE EVENT DATE: 19880715
